FAERS Safety Report 10332257 (Version 1)
Quarter: 2014Q3

REPORT INFORMATION
  Report Type: Spontaneous
  Country: US (occurrence: None)
  Receive Date: 20140721
  Receipt Date: 20140721
  Transmission Date: 20150326
  Serious: Yes (Other)
  Sender: FDA-Public Use
  Company Number: None

PATIENT
  Age: 31 Year
  Sex: Female
  Weight: 77.11 kg

DRUGS (1)
  1. VERSED [Suspect]
     Active Substance: MIDAZOLAM HYDROCHLORIDE
     Indication: HERNIA REPAIR
     Route: 042
     Dates: start: 20071212, end: 20071212

REACTIONS (3)
  - Loss of consciousness [None]
  - Blood pressure decreased [None]
  - Amnesia [None]

NARRATIVE: CASE EVENT DATE: 20071212
